FAERS Safety Report 20906638 (Version 2)
Quarter: 2022Q3

REPORT INFORMATION
  Report Type: Report from Study
  Country: DE (occurrence: None)
  Receive Date: 20220602
  Receipt Date: 20220730
  Transmission Date: 20221027
  Serious: Yes (Hospitalization)
  Sender: FDA-Public Use
  Company Number: DE-ROCHE-3104572

PATIENT
  Age: 33 Year
  Sex: Female
  Weight: 75 kg

DRUGS (7)
  1. ATEZOLIZUMAB [Suspect]
     Active Substance: ATEZOLIZUMAB
     Indication: Triple negative breast cancer
     Dosage: 19/APR/2022:DATE OF LAST DOSE PRIOR TO SAE
     Route: 041
     Dates: start: 20211228
  2. PACLITAXEL [Suspect]
     Active Substance: PACLITAXEL
     Indication: Triple negative breast cancer
     Dosage: 12/APR/2022:DATE OF LAST DOSE PRIOR TO SAE
     Route: 042
     Dates: start: 20220111
  3. CARBOPLATIN [Suspect]
     Active Substance: CARBOPLATIN
     Indication: Triple negative breast cancer
     Dosage: 12/APR/2022:DATE OF LAST DOSE PRIOR TO SAE
     Route: 042
     Dates: start: 20220111
  4. EPIRUBICIN [Suspect]
     Active Substance: EPIRUBICIN
     Indication: Triple negative breast cancer
     Dosage: ON 19/APR/2022 SHE RECEIVED LAST DOSE PRIOR TO AE
     Route: 042
     Dates: start: 20220419
  5. CYCLOPHOSPHAMIDE [Suspect]
     Active Substance: CYCLOPHOSPHAMIDE
     Indication: Triple negative breast cancer
     Dosage: ON 19/APR/2022 SHE RECEIVED LAST DOSE PRIOR TO AE
     Route: 042
     Dates: start: 20220419
  6. DEXAMETHASONE [Concomitant]
     Active Substance: DEXAMETHASONE
     Route: 065
     Dates: start: 20220110
  7. GRANISETRON [Concomitant]
     Active Substance: GRANISETRON
     Route: 065
     Dates: start: 20220110

REACTIONS (1)
  - Pneumonitis [Recovered/Resolved]

NARRATIVE: CASE EVENT DATE: 20220426
